FAERS Safety Report 19200196 (Version 2)
Quarter: 2021Q3

REPORT INFORMATION
  Report Type: Spontaneous
  Country: US (occurrence: US)
  Receive Date: 20210430
  Receipt Date: 20210802
  Transmission Date: 20211014
  Serious: No
  Sender: FDA-Public Use
  Company Number: US-AMNEAL PHARMACEUTICALS-2021-AMRX-01228

PATIENT
  Sex: Female

DRUGS (1)
  1. GUAIFENESIN. [Suspect]
     Active Substance: GUAIFENESIN
     Indication: PRODUCTIVE COUGH
     Dosage: 2 DOSAGE FORM, EVERY 12HR (DAILY)
     Route: 048
     Dates: start: 2020, end: 2020

REACTIONS (6)
  - Condition aggravated [Unknown]
  - Urticaria [Unknown]
  - Swollen tongue [Unknown]
  - Drug ineffective [Unknown]
  - Hypoaesthesia [Unknown]
  - Rash [Unknown]

NARRATIVE: CASE EVENT DATE: 2021
